FAERS Safety Report 4713079-4 (Version None)
Quarter: 2005Q3

REPORT INFORMATION
  Report Type: 
  Country: None (occurrence: None)
  Receive Date: 20050711
  Receipt Date: 20050628
  Transmission Date: 20060218
  Serious: Yes (Hospitalization, Other)
  Sender: FDA-Public Use
  Company Number: HQWYE306307JUN05

PATIENT
  Age: 76 Year
  Sex: Male
  Weight: 81.5 kg

DRUGS (31)
  1. RAPAMUNE [Suspect]
     Indication: PROPHYLAXIS AGAINST TRANSPLANT REJECTION
     Dosage: SEE IMAGE
     Route: 048
     Dates: start: 20050131, end: 20050609
  2. RAPAMUNE [Suspect]
     Indication: PROPHYLAXIS AGAINST TRANSPLANT REJECTION
     Dosage: SEE IMAGE
     Route: 048
     Dates: start: 20050613, end: 20050613
  3. RAPAMUNE [Suspect]
     Indication: PROPHYLAXIS AGAINST TRANSPLANT REJECTION
     Dosage: SEE IMAGE
     Route: 048
     Dates: start: 20050615, end: 20050618
  4. RAPAMUNE [Suspect]
     Indication: PROPHYLAXIS AGAINST TRANSPLANT REJECTION
     Dosage: SEE IMAGE
     Route: 048
     Dates: start: 20050619, end: 20050619
  5. RAPAMUNE [Suspect]
     Indication: PROPHYLAXIS AGAINST TRANSPLANT REJECTION
     Dosage: SEE IMAGE
     Route: 048
     Dates: start: 20050620
  6. ZEPAX (DACLIZUMAB) [Concomitant]
  7. PREDNISONE [Concomitant]
  8. PROGRAF [Concomitant]
  9. COUMADIN [Concomitant]
  10. LOVENOX (HEPARIN-FRACTION, SODIUM SLAT) [Concomitant]
  11. DIGOXIN [Concomitant]
  12. CIPRO [Concomitant]
  13. FLOMAX [Concomitant]
  14. FLOVENT (FLUTICAOSNE PROPIONATE) [Concomitant]
  15. COMBIVENT (IPRATROPIUM BROMIDE/SALBATAMOL SULFATE) [Concomitant]
  16. ALBUTEROL [Concomitant]
  17. PROCRIT (ERYTYROPOIETIN) [Concomitant]
  18. TENORMIN [Concomitant]
  19. NORVASC [Concomitant]
  20. PANCREAS (PANCRELIPASE) [Concomitant]
  21. SODIUM BICARBONATE IN PLASTIC CONTAINER [Concomitant]
  22. CARDURA [Concomitant]
  23. PROTONIX [Concomitant]
  24. BACTRIM [Concomitant]
  25. CALCIUM CARBONATE (CALCIUM CARBONATE) [Concomitant]
  26. PRAVACHOL [Concomitant]
  27. LANTUS [Concomitant]
  28. NOVOLOG [Concomitant]
  29. MULTIVITAMINS, PLAIN (MULTIVITAMINS, PLAIN) [Concomitant]
  30. MAGNESIUM OXIDE (MAGNESIUM OXIDE) [Concomitant]
  31. GABAPENTIN [Concomitant]

REACTIONS (20)
  - BLEEDING TIME PROLONGED [None]
  - BLOOD CHLORIDE INCREASED [None]
  - BLOOD CREATININE INCREASED [None]
  - BLOOD GLUCOSE INCREASED [None]
  - BLOOD SODIUM INCREASED [None]
  - COMPLICATIONS OF TRANSPLANTED KIDNEY [None]
  - DRUG ERUPTION [None]
  - DRUG INEFFECTIVE [None]
  - FLUID OVERLOAD [None]
  - INTERNATIONAL NORMALISED RATIO DECREASED [None]
  - KIDNEY TRANSPLANT REJECTION [None]
  - NEPHROSCLEROSIS [None]
  - OPERATIVE HAEMORRHAGE [None]
  - OXYGEN SATURATION DECREASED [None]
  - PULMONARY OEDEMA [None]
  - RASH ERYTHEMATOUS [None]
  - RENAL IMPAIRMENT [None]
  - RENAL TUBULAR DISORDER [None]
  - THROMBOTIC MICROANGIOPATHY [None]
  - URTICARIA [None]
